FAERS Safety Report 9391100 (Version 2)
Quarter: 2013Q3

REPORT INFORMATION
  Report Type: Spontaneous
  Country: US (occurrence: US)
  Receive Date: 20130709
  Receipt Date: 20130711
  Transmission Date: 20140515
  Serious: Yes (Other)
  Sender: FDA-Public Use
  Company Number: US-PFIZER INC-2013201216

PATIENT
  Age: 72 Year
  Sex: Male
  Weight: 64.4 kg

DRUGS (8)
  1. CITALOPRAM [Suspect]
     Indication: DEPRESSION
     Dosage: UNK
  2. ZOLOFT [Suspect]
     Indication: DEPRESSION
     Dosage: 100 MG, DAILY
     Dates: start: 201212
  3. ZOLOFT [Suspect]
     Dosage: 50 MG, DAILY
     Dates: start: 2013
  4. ZOLOFT [Suspect]
     Dosage: HALF TABLET OF 50MG, DAILY
     Dates: start: 20130701
  5. PROSCAR [Concomitant]
     Indication: PROSTATOMEGALY
     Dosage: 5 MG, DAILY
  6. METOPROLOL TARTRATE [Concomitant]
     Indication: WOLFF-PARKINSON-WHITE SYNDROME
     Dosage: 50 MG, DAILY
  7. TEMAZEPAM [Concomitant]
     Indication: SLEEP DISORDER
     Dosage: 15 MG, DAILY AT NIGHT
  8. LORAZEPAM [Concomitant]
     Indication: STRESS
     Dosage: 1 MG, AS NEEDED

REACTIONS (5)
  - Haemorrhage [Not Recovered/Not Resolved]
  - Blood urine present [Not Recovered/Not Resolved]
  - Thrombosis [Not Recovered/Not Resolved]
  - Prostatomegaly [Not Recovered/Not Resolved]
  - Drug ineffective [Unknown]
